FAERS Safety Report 5754873-0 (Version None)
Quarter: 2008Q2

REPORT INFORMATION
  Report Type: 
  Country: None (occurrence: None)
  Receive Date: 20080527
  Receipt Date: 20080507
  Transmission Date: 20081010
  Serious: Yes (Hospitalization)
  Sender: FDA-Public Use
  Company Number: 2008AL003879

PATIENT
  Age: 55 Year
  Sex: Male
  Weight: 78.9259 kg

DRUGS (10)
  1. DIGOXIN [Suspect]
     Indication: CARDIAC DISORDER
     Dosage: 0.25 MG, DAILY, PO
     Route: 048
  2. PLAVIX [Concomitant]
  3. METOPROLOL TARTRATE [Concomitant]
  4. ISOSORBIDE DINITRATE [Concomitant]
  5. CRESTOR [Concomitant]
  6. ADVAIR DISKUS 100/50 [Concomitant]
  7. NEXIUM [Concomitant]
  8. IRON PILL [Concomitant]
  9. ASPIRIN [Concomitant]
  10. MULTI-VITAMIN [Concomitant]

REACTIONS (1)
  - CHEST PAIN [None]
